FAERS Safety Report 9407352 (Version 1)
Quarter: 2013Q3

REPORT INFORMATION
  Report Type: Spontaneous
  Country: GB (occurrence: GB)
  Receive Date: 20130718
  Receipt Date: 20130718
  Transmission Date: 20140515
  Serious: Yes (Other)
  Sender: FDA-Public Use
  Company Number: GB-BANPHARM-20131479

PATIENT
  Age: 28 Year
  Sex: Female
  Weight: 57 kg

DRUGS (4)
  1. IBUPROFEN UNKNOWN PRODUCT [Suspect]
     Indication: ARTHRITIS
     Dosage: 400 MG, PRN,
     Dates: start: 2009
  2. CALCICHEW [Suspect]
     Indication: BONE DISORDER
     Dosage: 1 DF, QD,
     Route: 048
     Dates: start: 2012
  3. REMICADE [Suspect]
     Indication: RHEUMATOID ARTHRITIS
     Dosage: 3 MG/KG, 1 DF, 8 WEEKS,
     Route: 042
     Dates: start: 20120614
  4. SULPHASALAZINE [Suspect]
     Indication: RHEUMATOID ARTHRITIS
     Dosage: 1 G, BID,
     Route: 048
     Dates: start: 2009

REACTIONS (3)
  - Hyperemesis gravidarum [Unknown]
  - Abortion spontaneous [Recovered/Resolved]
  - Exposure during pregnancy [Recovered/Resolved]
